FAERS Safety Report 5933245-X (Version None)
Quarter: 2008Q4

REPORT INFORMATION
  Report Type: 
  Country: None (occurrence: None)
  Receive Date: 20081028
  Receipt Date: 20081023
  Transmission Date: 20090506
  Serious: Yes (Other)
  Sender: FDA-Public Use
  Company Number: FR-ROXANE LABORATORIES, INC.-2008-RO-00152RO

PATIENT
  Age: 23 Year
  Sex: Male

DRUGS (4)
  1. CLARITHROMYCIN [Suspect]
     Indication: BRONCHITIS
     Dosage: 1000MG
  2. CARBAMAZEPINE [Suspect]
     Indication: FRONTAL LOBE EPILEPSY
     Dosage: 1200MG
  3. VALPROIC ACID [Suspect]
     Indication: FRONTAL LOBE EPILEPSY
     Dosage: 2000MG
  4. CLOBAZAM [Suspect]
     Indication: FRONTAL LOBE EPILEPSY
     Dosage: 20MG

REACTIONS (2)
  - DRUG INTERACTION [None]
  - DRUG TOXICITY [None]
